FAERS Safety Report 23460361 (Version 1)
Quarter: 2024Q1

REPORT INFORMATION
  Report Type: Spontaneous
  Country: FR (occurrence: FR)
  Receive Date: 20240131
  Receipt Date: 20240131
  Transmission Date: 20240410
  Serious: Yes (Death, Hospitalization, Other)
  Sender: FDA-Public Use
  Company Number: None

PATIENT

DRUGS (2)
  1. ACYCLOVIR [Suspect]
     Active Substance: ACYCLOVIR
     Indication: Herpes ophthalmic
     Dosage: 600 MILLIGRAM, Q8H
     Route: 065
     Dates: start: 20221024, end: 20221025
  2. CEFIDEROCOL SULFATE TOSYLATE [Suspect]
     Active Substance: CEFIDEROCOL SULFATE TOSYLATE
     Indication: Acinetobacter bacteraemia
     Dosage: 2 GRAM, Q8H
     Route: 065
     Dates: start: 20221019, end: 20221020

REACTIONS (2)
  - Acute kidney injury [Not Recovered/Not Resolved]
  - Encephalopathy [Fatal]

NARRATIVE: CASE EVENT DATE: 20221025
